FAERS Safety Report 9068945 (Version 1)
Quarter: 2013Q1

REPORT INFORMATION
  Report Type: Spontaneous
  Country: US (occurrence: US)
  Receive Date: 20130128
  Receipt Date: 20130128
  Transmission Date: 20140127
  Serious: Yes (Life-Threatening, Hospitalization)
  Sender: FDA-Public Use
  Company Number: PHEH2013US002142

PATIENT
  Age: 58 Year
  Sex: Female

DRUGS (1)
  1. GILENYA [Suspect]

REACTIONS (8)
  - Feeling abnormal [Unknown]
  - Coronary artery occlusion [Unknown]
  - Myocardial infarction [Unknown]
  - Loss of consciousness [Unknown]
  - Convulsion [Unknown]
  - Blood pressure abnormal [Recovering/Resolving]
  - Pain [Unknown]
  - Heart rate decreased [Unknown]
